FAERS Safety Report 7348601-5 (Version None)
Quarter: 2011Q1

REPORT INFORMATION
  Report Type: 
  Country: None (occurrence: None)
  Receive Date: 20110314
  Receipt Date: 20110304
  Transmission Date: 20110831
  Serious: No
  Sender: FDA-Public Use
  Company Number: US-BIOGENIDEC-2010BI023534

PATIENT
  Age: 49 Year
  Sex: Female

DRUGS (4)
  1. NEURONTIN [Concomitant]
     Indication: NEUROPATHY PERIPHERAL
  2. TYSABRI [Suspect]
     Indication: MULTIPLE SCLEROSIS
     Route: 042
     Dates: start: 20100622, end: 20101013
  3. TYSABRI [Suspect]
     Route: 042
     Dates: start: 20101223
  4. STEROIDS (NOS) [Concomitant]
     Indication: MULTIPLE SCLEROSIS RELAPSE

REACTIONS (9)
  - DIZZINESS [None]
  - PARAESTHESIA [None]
  - FATIGUE [None]
  - BALANCE DISORDER [None]
  - ALOPECIA [None]
  - NAUSEA [None]
  - BONE PAIN [None]
  - MUSCULOSKELETAL DISCOMFORT [None]
  - PAIN IN EXTREMITY [None]
